FAERS Safety Report 7750871-6 (Version None)
Quarter: 2011Q3

REPORT INFORMATION
  Report Type: 
  Country: None (occurrence: None)
  Receive Date: 20110914
  Receipt Date: 20110907
  Transmission Date: 20111222
  Serious: Yes (Hospitalization, Other)
  Sender: FDA-Public Use
  Company Number: US-ASTRAZENECA-2010SE23152

PATIENT
  Age: 50 Year
  Sex: Male

DRUGS (6)
  1. LIPITOR [Concomitant]
  2. PREVACID [Concomitant]
  3. ROLAIDS [Concomitant]
  4. NEXIUM [Suspect]
     Indication: HYPERCHLORHYDRIA
     Route: 048
     Dates: start: 20010101
  5. ACIPHEX [Concomitant]
  6. PEPCID AC [Concomitant]

REACTIONS (9)
  - BLOOD CHOLESTEROL INCREASED [None]
  - LIMB INJURY [None]
  - INTERVERTEBRAL DISC PROTRUSION [None]
  - GASTROOESOPHAGEAL REFLUX DISEASE [None]
  - NERVE COMPRESSION [None]
  - BACK INJURY [None]
  - NEOPLASM [None]
  - ACCIDENT AT WORK [None]
  - DRUG DOSE OMISSION [None]
